FAERS Safety Report 14369884 (Version 2)
Quarter: 2018Q1

REPORT INFORMATION
  Report Type: Report from Study
  Country: GB (occurrence: ES)
  Receive Date: 20180110
  Receipt Date: 20180120
  Transmission Date: 20180509
  Serious: Yes (Death, Hospitalization)
  Sender: FDA-Public Use
  Company Number: GB-AMGEN-ESPSL2018001021

PATIENT
  Sex: Female

DRUGS (1)
  1. ARANESP [Suspect]
     Active Substance: DARBEPOETIN ALFA
     Indication: PRODUCT USED FOR UNKNOWN INDICATION
     Dosage: 80 MUG, UNK
     Route: 065

REACTIONS (2)
  - Ill-defined disorder [Unknown]
  - Death [Fatal]
